FAERS Safety Report 20212241 (Version 5)
Quarter: 2022Q1

REPORT INFORMATION
  Report Type: Spontaneous
  Country: FR (occurrence: FR)
  Receive Date: 20211221
  Receipt Date: 20220110
  Transmission Date: 20220424
  Serious: Yes (Other)
  Sender: FDA-Public Use
  Company Number: FR-BAYER-2021A269482

PATIENT

DRUGS (2)
  1. EYLEA [Suspect]
     Active Substance: AFLIBERCEPT
     Indication: Product used for unknown indication
     Dosage: PATIENT RECEIVED 43 EYLEA INJECTIONS BEFORE THE EVENT, OS
  2. EYLEA [Suspect]
     Active Substance: AFLIBERCEPT
     Dosage: 1 DF, ONCE - LAST INJECTION PERFORMED
     Dates: start: 20211117, end: 20211117

REACTIONS (7)
  - Intraocular pressure increased [Recovered/Resolved]
  - Amaurosis fugax [Recovered/Resolved]
  - Keratitis [Recovered/Resolved]
  - Ocular hypertension [Recovered/Resolved]
  - Wrong technique in product usage process [Unknown]
  - Device use issue [Unknown]
  - Corneal oedema [Recovered/Resolved]

NARRATIVE: CASE EVENT DATE: 20211115
